FAERS Safety Report 11697087 (Version 1)
Quarter: 2015Q4

REPORT INFORMATION
  Report Type: Report from Study
  Country: US (occurrence: US)
  Receive Date: 20151104
  Receipt Date: 20151104
  Transmission Date: 20160304
  Serious: Yes (Other)
  Sender: FDA-Public Use
  Company Number: US-AMGEN-USASL2015114666

PATIENT
  Age: 70 Year
  Sex: Male

DRUGS (1)
  1. ENBREL [Suspect]
     Active Substance: ETANERCEPT
     Indication: RHEUMATOID ARTHRITIS
     Dosage: 50 MG, UNK
     Route: 065
     Dates: end: 20151021

REACTIONS (7)
  - Peripheral venous disease [Unknown]
  - Peripheral swelling [Unknown]
  - Joint fluid drainage [Unknown]
  - Pyrexia [Unknown]
  - Cough [Unknown]
  - Arthritis [Unknown]
  - Back disorder [Unknown]

NARRATIVE: CASE EVENT DATE: 20151029
